FAERS Safety Report 6406141-1 (Version None)
Quarter: 2009Q4

REPORT INFORMATION
  Report Type: 
  Country: None (occurrence: None)
  Receive Date: 20091016
  Receipt Date: 20091016
  Transmission Date: 20100525
  Serious: Yes (Other)
  Sender: FDA-Public Use
  Company Number: None

PATIENT
  Age: 57 Year
  Sex: Female
  Weight: 79 kg

DRUGS (2)
  1. ZYPREXA [Suspect]
     Indication: PSYCHOTIC DISORDER
     Dosage: 15MG  EVERY NIGHT PO
     Route: 048
     Dates: start: 20090902, end: 20091012
  2. HYDROCHLOROTHIAZIDE 25MG TAB [Suspect]
     Indication: HYPERTENSION
     Dosage: 25MG DAILY PO
     Route: 048
     Dates: start: 20090904

REACTIONS (1)
  - NEUTROPENIA [None]
